FAERS Safety Report 4364924-6 (Version None)
Quarter: 2004Q2

REPORT INFORMATION
  Report Type: 
  Country: None (occurrence: None)
  Receive Date: 20040521
  Receipt Date: 20040505
  Transmission Date: 20050107
  Serious: Yes (Death, Other)
  Sender: FDA-Public Use
  Company Number: USA040362439

PATIENT
  Age: 28 Year
  Sex: Male
  Weight: 86 kg

DRUGS (5)
  1. ZYPREXA [Suspect]
     Indication: BIPOLAR DISORDER
     Dosage: 10 MG DAY
     Dates: start: 20030101
  2. OXYCONTIN [Concomitant]
  3. AMBIEN [Concomitant]
  4. XANAX [Concomitant]
  5. PAXIL [Concomitant]

REACTIONS (2)
  - MYOCARDIAL INFARCTION [None]
  - WEIGHT INCREASED [None]
